FAERS Safety Report 5763063-7 (Version None)
Quarter: 2008Q2

REPORT INFORMATION
  Report Type: 
  Country: None (occurrence: None)
  Receive Date: 20080609
  Receipt Date: 20080529
  Transmission Date: 20081010
  Serious: Yes (Congenital Anomaly, Other)
  Sender: FDA-Public Use
  Company Number: US-PFIZER INC-2008036082

PATIENT
  Age: 45 Year
  Sex: Female
  Weight: 81.818 kg

DRUGS (12)
  1. REVATIO [Suspect]
     Indication: PULMONARY HYPERTENSION
     Route: 048
  2. AMLODIPINE [Concomitant]
  3. TOPROL-XL [Concomitant]
  4. TIKOSYN [Concomitant]
  5. FUROSEMIDE [Concomitant]
  6. PREDNISONE TAB [Concomitant]
  7. METOLAZONE [Concomitant]
  8. CYCLOSPORINE [Concomitant]
  9. PRILOSEC [Concomitant]
  10. WARFARIN SODIUM [Concomitant]
  11. OXYGEN [Concomitant]
  12. POTASSIUM CHLORIDE [Concomitant]

REACTIONS (3)
  - CONGENITAL ANOMALY [None]
  - GOUT [None]
  - REMOVAL OF TRANSPLANTED ORGAN [None]
